FAERS Safety Report 6906087-6 (Version None)
Quarter: 2010Q3

REPORT INFORMATION
  Report Type: 
  Country: None (occurrence: None)
  Receive Date: 20100804
  Receipt Date: 20100723
  Transmission Date: 20110219
  Serious: Yes (Other)
  Sender: FDA-Public Use
  Company Number: SE-GENENTECH-304759

PATIENT
  Age: 23 Year
  Sex: Female

DRUGS (2)
  1. MABTHERA [Suspect]
     Indication: RHEUMATOID ARTHRITIS
     Dosage: UNK
     Route: 065
     Dates: start: 20090101
  2. MABTHERA [Suspect]
     Dosage: UNK
     Route: 065
     Dates: start: 20100301

REACTIONS (1)
  - COLITIS ULCERATIVE [None]
